FAERS Safety Report 10596006 (Version 1)
Quarter: 2014Q4

REPORT INFORMATION
  Report Type: Spontaneous
  Country: JP (occurrence: JP)
  Receive Date: 20141120
  Receipt Date: 20141120
  Transmission Date: 20150529
  Serious: Yes (Other)
  Sender: FDA-Public Use
  Company Number: JP-BRISTOL-MYERS SQUIBB COMPANY-21595418

PATIENT
  Age: 76 Year
  Sex: Male

DRUGS (8)
  1. PREGABALIN. [Suspect]
     Active Substance: PREGABALIN
     Indication: DIABETIC NEUROPATHY
     Route: 048
     Dates: start: 20140825, end: 2014
  2. AZELNIDIPINE [Suspect]
     Active Substance: AZELNIDIPINE
     Route: 048
     Dates: start: 20140825
  3. METGLUCO [Suspect]
     Active Substance: METFORMIN HYDROCHLORIDE
     Route: 048
     Dates: start: 20140825
  4. VITAMEDIN [Concomitant]
     Active Substance: CYANOCOBALAMIN\PYRIDOXINE HYDROCHLORIDE\THIAMINE
  5. JUVELA [Concomitant]
     Active Substance: .ALPHA.-TOCOPHEROL\RETINOL
  6. NOVORAPID [Suspect]
     Active Substance: INSULIN ASPART
     Dosage: 10 ID IN THE MORNING AND 12 ID IN THE EVENING
     Route: 058
     Dates: start: 20140825
  7. PRAVASTATIN SODIUM. [Concomitant]
     Active Substance: PRAVASTATIN SODIUM
  8. BAYASPIRIN [Concomitant]
     Active Substance: ASPIRIN

REACTIONS (3)
  - Dizziness postural [Recovered/Resolved]
  - Altered state of consciousness [Recovered/Resolved]
  - Activities of daily living impaired [Recovered/Resolved]

NARRATIVE: CASE EVENT DATE: 20140825
